FAERS Safety Report 7909219-6 (Version None)
Quarter: 2011Q4

REPORT INFORMATION
  Report Type: 
  Country: None (occurrence: None)
  Receive Date: 20111111
  Receipt Date: 20111101
  Transmission Date: 20120403
  Serious: Yes (Other)
  Sender: FDA-Public Use
  Company Number: US-MYLANLABS-2011S1022708

PATIENT
  Sex: Female

DRUGS (6)
  1. SEROQUEL [Concomitant]
     Indication: INSOMNIA
     Route: 048
  2. BUPROPION HYDROCHLORIDE [Suspect]
     Route: 048
     Dates: start: 20111031
  3. BUPROPION HYDROCHLORIDE [Suspect]
     Indication: DEPRESSION
     Route: 048
     Dates: start: 20111001, end: 20111001
  4. BUPROPION HYDROCHLORIDE [Suspect]
     Route: 048
     Dates: start: 20111001, end: 20111001
  5. BUPROPION HYDROCHLORIDE [Suspect]
     Route: 048
     Dates: start: 20111001, end: 20111001
  6. ATIVAN [Concomitant]
     Indication: INSOMNIA
     Route: 048

REACTIONS (5)
  - FALL [None]
  - WRIST FRACTURE [None]
  - INSOMNIA [None]
  - DIZZINESS [None]
  - AGITATION [None]
